FAERS Safety Report 17401607 (Version 1)
Quarter: 2020Q1

REPORT INFORMATION
  Report Type: Spontaneous
  Country: US (occurrence: US)
  Receive Date: 20200126
  Receipt Date: 20200126
  Transmission Date: 20200409
  Serious: No
  Sender: FDA-Public Use
  Company Number: None

PATIENT
  Age: 66 Year
  Sex: Male

DRUGS (1)
  1. CEFTAROLINE (CEFTAROLINE FOSAMIL 600MG/VIL INJ) [Suspect]
     Active Substance: CEFTAROLINE
     Indication: OSTEOMYELITIS
     Dosage: ?          OTHER ROUTE:IV?
     Dates: start: 20191029, end: 20191202

REACTIONS (3)
  - Rash [None]
  - Erythema multiforme [None]
  - Drug reaction with eosinophilia and systemic symptoms [None]

NARRATIVE: CASE EVENT DATE: 20191202
